FAERS Safety Report 8114731-3 (Version None)
Quarter: 2012Q1

REPORT INFORMATION
  Report Type: 
  Country: None (occurrence: None)
  Receive Date: 20120206
  Receipt Date: 20120203
  Transmission Date: 20120608
  Serious: Yes (Hospitalization)
  Sender: FDA-Public Use
  Company Number: UA-EISAI INC-E2090-01759-CLI-UA

PATIENT
  Sex: Female
  Weight: 84.4 kg

DRUGS (4)
  1. VALPROATE SODIUM [Concomitant]
     Indication: EPILEPSY
     Route: 048
     Dates: start: 20100101
  2. ZONISAMIDE [Suspect]
     Route: 048
     Dates: start: 20110126, end: 20111220
  3. ZONISAMIDE [Suspect]
     Indication: EPILEPSY
     Route: 048
     Dates: start: 20101208, end: 20110125
  4. CLONAZEPAM [Concomitant]
     Indication: EPILEPSY
     Route: 048
     Dates: start: 20100101

REACTIONS (1)
  - FOOT FRACTURE [None]
